FAERS Safety Report 7465268-6 (Version None)
Quarter: 2011Q2

REPORT INFORMATION
  Report Type: 
  Country: None (occurrence: None)
  Receive Date: 20110509
  Receipt Date: 20110503
  Transmission Date: 20111010
  Serious: Yes (Death, Other)
  Sender: FDA-Public Use
  Company Number: PHHY2011VE37562

PATIENT
  Sex: Male

DRUGS (4)
  1. ELANTRA [Concomitant]
  2. DIOVAN [Suspect]
     Indication: HYPERTENSION
     Dosage: 80 MG, UNK
     Route: 048
  3. BENICAR [Concomitant]
  4. COVENTROL [Concomitant]

REACTIONS (4)
  - DEATH [None]
  - CEREBROVASCULAR ACCIDENT [None]
  - BLISTER [None]
  - CARDIOVASCULAR INSUFFICIENCY [None]
